FAERS Safety Report 9551989 (Version 1)
Quarter: 2013Q3

REPORT INFORMATION
  Report Type: Spontaneous
  Country: AU (occurrence: None)
  Receive Date: 20130801
  Receipt Date: 20130801
  Transmission Date: 20140515
  Serious: Yes (Other)
  Sender: FDA-Public Use
  Company Number: AU-PMX02-12-00033

PATIENT
  Age: 4 Year
  Sex: Female
  Weight: 20 kg

DRUGS (3)
  1. ARIDOL [Suspect]
     Indication: PULMONARY FUNCTION CHALLENGE TEST
     Route: 055
  2. FLIMOTIDE (FLUTICASONE PROPIONATE) (FLUTICASONE PROPIONATE) [Concomitant]
  3. VENTOLIN (SALBUTAMOL) (SALBUTAMOL) [Concomitant]

REACTIONS (2)
  - Wheezing [None]
  - Oxygen saturation decreased [None]
